FAERS Safety Report 6738060-5 (Version None)
Quarter: 2010Q2

REPORT INFORMATION
  Report Type: 
  Country: None (occurrence: None)
  Receive Date: 20100524
  Receipt Date: 20100514
  Transmission Date: 20101027
  Serious: Yes (Other)
  Sender: FDA-Public Use
  Company Number: US-BAYER-201012412BCC

PATIENT
  Age: 80 Year
  Sex: Female
  Weight: 50 kg

DRUGS (3)
  1. PHILLIP'S MILK OF MAGNESIA CHERRY FLAVOR [Suspect]
     Indication: BOWEL MOVEMENT IRREGULARITY
     Dosage: 2 TABLESPOON ONCE A DAY OR EVERY OTHER DAY
     Route: 048
     Dates: start: 20100101, end: 20100228
  2. METAMUCIL-2 [Concomitant]
  3. INSULIN [Concomitant]
     Dosage: AS USED: 15/10 IU

REACTIONS (1)
  - BLOOD GLUCOSE INCREASED [None]
